FAERS Safety Report 5809711-4 (Version None)
Quarter: 2008Q3

REPORT INFORMATION
  Report Type: 
  Country: None (occurrence: None)
  Receive Date: 20080711
  Receipt Date: 20080711
  Transmission Date: 20090109
  Serious: Yes (Life-Threatening, Hospitalization)
  Sender: FDA-Public Use
  Company Number: None

PATIENT
  Age: 47 Year
  Sex: Male
  Weight: 88.4514 kg

DRUGS (1)
  1. BACLOFEN [Suspect]
     Indication: MUSCLE SPASMS
     Dosage: 20 MG 2X PO
     Route: 048
     Dates: start: 20080618, end: 20080621

REACTIONS (5)
  - CONVULSION [None]
  - DIZZINESS [None]
  - HEADACHE [None]
  - HYPERTENSION [None]
  - MOOD SWINGS [None]
